FAERS Safety Report 10441244 (Version 1)
Quarter: 2014Q3

REPORT INFORMATION
  Report Type: Report from Study
  Country: US (occurrence: US)
  Receive Date: 20140909
  Receipt Date: 20140909
  Transmission Date: 20150326
  Serious: Yes (Other)
  Sender: FDA-Public Use
  Company Number: US-SA-2014SA120186

PATIENT
  Age: 66 Year
  Sex: Male

DRUGS (3)
  1. LANTUS [Suspect]
     Active Substance: INSULIN GLARGINE
     Indication: TYPE 2 DIABETES MELLITUS
     Dosage: DOSE:30 UNIT(S)
     Route: 065
  2. NPH INSULIN [Concomitant]
     Active Substance: INSULIN BEEF
  3. APIDRA [Suspect]
     Active Substance: INSULIN GLULISINE
     Dosage: 12, 12, AND 12 OF THE APIDRA BEFORE EACH MAIN MEAL, UNITS UNSPECIFIED
     Route: 065

REACTIONS (4)
  - Foot operation [Unknown]
  - Heart rate irregular [Unknown]
  - Anhedonia [Unknown]
  - Drug administration error [Unknown]

NARRATIVE: CASE EVENT DATE: 201401
